FAERS Safety Report 5197539-0 (Version None)
Quarter: 2006Q4

REPORT INFORMATION
  Report Type: 
  Country: None (occurrence: None)
  Receive Date: 20060926
  Receipt Date: 20060724
  Transmission Date: 20070319
  Serious: No
  Sender: FDA-Public Use
  Company Number: SP00869

PATIENT
  Age: 67 Year
  Sex: Female
  Weight: 59.8748 kg

DRUGS (1)
  1. XIFAXAN [Suspect]
     Indication: ABDOMINAL DISTENSION
     Dosage: 400 MG, BID, ONCE; ORAL
     Route: 048
     Dates: start: 20060523, end: 20060523

REACTIONS (3)
  - ABDOMINAL PAIN LOWER [None]
  - DIARRHOEA [None]
  - GASTROENTERITIS [None]
